FAERS Safety Report 22633777 (Version 1)
Quarter: 2023Q2

REPORT INFORMATION
  Report Type: Spontaneous
  Country: GB (occurrence: GB)
  Receive Date: 20230623
  Receipt Date: 20230623
  Transmission Date: 20230721
  Serious: Yes (Other)
  Sender: FDA-Public Use
  Company Number: None

PATIENT
  Age: 44 Year
  Sex: Female
  Weight: 99 kg

DRUGS (13)
  1. AMITRIPTYLINE [Suspect]
     Active Substance: AMITRIPTYLINE
     Indication: Product used for unknown indication
     Dosage: NIGHT
     Route: 048
     Dates: start: 20230530
  2. RAMIPRIL [Concomitant]
     Active Substance: RAMIPRIL
     Dates: start: 20221212
  3. ALBUTEROL [Concomitant]
     Active Substance: ALBUTEROL
     Dosage: 2 DOSES, INTERVAL: AS NECESSARY
     Route: 055
     Dates: start: 20230307
  4. ACYCLOVIR [Concomitant]
     Active Substance: ACYCLOVIR
     Dosage: TAKE 1 TABLET 5 X PER DAY
     Route: 048
     Dates: start: 20230601, end: 20230608
  5. ATORVASTATIN [Concomitant]
     Active Substance: ATORVASTATIN
     Dates: start: 20221212
  6. CROTAMITON [Concomitant]
     Active Substance: CROTAMITON
     Dosage: INTERVAL: AS NECESSARY
     Dates: start: 20230612
  7. EMPAGLIFLOZIN [Concomitant]
     Active Substance: EMPAGLIFLOZIN
     Dosage: TAKE WITH A FULL GLASS OF WATER
     Route: 048
     Dates: start: 20221212
  8. ESTRADIOL [Concomitant]
     Active Substance: ESTRADIOL
     Dates: start: 20230612
  9. GABAPENTIN [Concomitant]
     Active Substance: GABAPENTIN
     Dosage: DAY 1 - ONE CAPSULE DAILY. DAY 2 - ONE TWICE DA...
     Route: 048
     Dates: start: 20230612
  10. HUMALOG [Concomitant]
     Active Substance: INSULIN LISPRO
     Dosage: AT MEAL TIMES
     Dates: start: 20230116
  11. LANSOPRAZOLE [Concomitant]
     Active Substance: LANSOPRAZOLE
     Dates: start: 20230526
  12. METFORMIN [Concomitant]
     Active Substance: METFORMIN HYDROCHLORIDE
     Dosage: TAKE WITH FOOD
     Dates: start: 20221212
  13. NAPROXEN [Concomitant]
     Active Substance: NAPROXEN
     Dates: start: 20230526

REACTIONS (2)
  - Disorientation [Recovered/Resolved]
  - Brain fog [Recovered/Resolved]
